FAERS Safety Report 12974924 (Version 3)
Quarter: 2017Q1

REPORT INFORMATION
  Report Type: Spontaneous
  Country: US (occurrence: US)
  Receive Date: 20161125
  Receipt Date: 20170104
  Transmission Date: 20170428
  Serious: Yes (Hospitalization)
  Sender: FDA-Public Use
  Company Number: US-HORIZON-RAV-0250-2016

PATIENT
  Age: 45 Year
  Sex: Female

DRUGS (1)
  1. RAVICTI [Suspect]
     Active Substance: GLYCEROL PHENYLBUTYRATE
     Indication: UREA CYCLE ENZYME DEFICIENCY
     Dosage: 4.5 ML TID
     Dates: start: 20140924

REACTIONS (10)
  - Skin disorder [Recovered/Resolved]
  - Weight increased [Recovered/Resolved]
  - Infection [Recovered/Resolved]
  - Lymphoedema [Recovered/Resolved]
  - Gastrostomy tube site complication [Recovered/Resolved]
  - Mouth haemorrhage [Recovered/Resolved]
  - Fluid retention [Recovered/Resolved]
  - Hepatic cirrhosis [Recovered/Resolved]
  - Cough [Recovered/Resolved]
  - Epistaxis [Recovered/Resolved]
